FAERS Safety Report 9876752 (Version 1)
Quarter: 2014Q1

REPORT INFORMATION
  Report Type: Spontaneous
  Country: BR (occurrence: BR)
  Receive Date: 20140206
  Receipt Date: 20140206
  Transmission Date: 20141002
  Serious: Yes (Other)
  Sender: FDA-Public Use
  Company Number: BR-AMGEN-BRASP2014008108

PATIENT
  Age: 48 Year
  Sex: Female
  Weight: 48 kg

DRUGS (3)
  1. ENBREL [Suspect]
     Indication: RHEUMATOID ARTHRITIS
     Dosage: 50 MG, ONCE WEEKLY
     Route: 058
     Dates: start: 201312
  2. ABLOK PLUS [Concomitant]
     Indication: HYPERTENSION
     Dosage: 100 MG (2 TABLETS OF 50 MG), DAILY
  3. AMLODIPINE [Concomitant]
     Indication: HYPERTENSION
     Dosage: 5 MG (1 TABLET), DAILY

REACTIONS (7)
  - Hypersensitivity [Unknown]
  - Throat tightness [Unknown]
  - Pruritus [Unknown]
  - Cough [Unknown]
  - Increased upper airway secretion [Unknown]
  - Injection site erythema [Unknown]
  - Injection site pruritus [Unknown]
